FAERS Safety Report 9951493 (Version 2)
Quarter: 2014Q1

REPORT INFORMATION
  Report Type: Report from Study
  Country: FR (occurrence: FR)
  Receive Date: 20140304
  Receipt Date: 20140326
  Transmission Date: 20141002
  Serious: Yes (Other)
  Sender: FDA-Public Use
  Company Number: FR-CELGENEUS-056-21880-14022828

PATIENT
  Age: 77 Year
  Sex: Female
  Weight: 87 kg

DRUGS (8)
  1. REVLIMID [Suspect]
     Indication: CENTRAL NERVOUS SYSTEM LYMPHOMA
     Route: 048
     Dates: start: 20140122, end: 20140210
  2. RITUXIMAB [Suspect]
     Indication: LYMPHOMA
     Route: 041
     Dates: start: 20140122
  3. NEOLEX [Suspect]
     Indication: LYMPHOMA
     Route: 048
     Dates: start: 20140122
  4. ASPEGIC [Concomitant]
     Indication: THROMBOSIS PROPHYLAXIS
     Route: 065
  5. TAHOR [Concomitant]
     Indication: HYPERCHOLESTEROLAEMIA
     Route: 065
  6. LEVOTHYROX [Concomitant]
     Indication: HYPOTHYROIDISM
     Route: 065
  7. MOTILIUM [Concomitant]
     Indication: ANTIEMETIC SUPPORTIVE CARE
     Route: 065
  8. MINISINTROM [Concomitant]
     Indication: PRODUCT USED FOR UNKNOWN INDICATION
     Route: 048

REACTIONS (1)
  - Thrombophlebitis [Not Recovered/Not Resolved]
